FAERS Safety Report 5285705-5 (Version None)
Quarter: 2007Q1

REPORT INFORMATION
  Report Type: 
  Country: None (occurrence: None)
  Receive Date: 20070126
  Receipt Date: 20060208
  Transmission Date: 20070707
  Serious: Yes (Hospitalization)
  Sender: FDA-Public Use
  Company Number: 2006CT000823

PATIENT
  Age: 47 Year
  Sex: Male
  Weight: 74.3899 kg

DRUGS (14)
  1. VENTAVIS [Suspect]
     Indication: PULMONARY HYPERTENSION
     Dosage: 5 UG;6-9XD;INH
     Route: 055
     Dates: start: 20060103, end: 20060208
  2. POTASSIUM CHLORIDE [Concomitant]
  3. INSPRA [Concomitant]
  4. DIGOXIN [Concomitant]
  5. FUROSEMIDE [Concomitant]
  6. CYMBALTA [Concomitant]
  7. SILDENAFIL CITRATE [Concomitant]
  8. HYDROCODONE [Concomitant]
  9. VALIUM [Concomitant]
  10. WARFARIN SODIUM [Concomitant]
  11. TIOTROPIUM BROMIDE [Concomitant]
  12. ADVAIR DISKUS 100/50 [Concomitant]
  13. ALBUTEROL [Concomitant]
  14. LIDODERM [Concomitant]

REACTIONS (1)
  - DYSPNOEA [None]
